FAERS Safety Report 8242684-6 (Version None)
Quarter: 2012Q1

REPORT INFORMATION
  Report Type: 
  Country: None (occurrence: None)
  Receive Date: 20120329
  Receipt Date: 20110420
  Transmission Date: 20120608
  Serious: Yes (Hospitalization)
  Sender: FDA-Public Use
  Company Number: IT-CELGENEUS-083-21880-12011115

PATIENT

DRUGS (1)
  1. REVLIMID [Suspect]
     Indication: MYELOMA RECURRENCE
     Dosage: 10 MILLIGRAM
     Route: 048

REACTIONS (4)
  - IRRITABILITY [None]
  - ERYTHEMA [None]
  - INTESTINAL OBSTRUCTION [None]
  - CONFUSIONAL STATE [None]
